FAERS Safety Report 7463398-6 (Version None)
Quarter: 2011Q2

REPORT INFORMATION
  Report Type: 
  Country: None (occurrence: None)
  Receive Date: 20110506
  Receipt Date: 20110428
  Transmission Date: 20111010
  Serious: Yes (Other)
  Sender: FDA-Public Use
  Company Number: A0924944A

PATIENT
  Age: 85 Year
  Sex: Female

DRUGS (14)
  1. DOXAZOSIN MESYLATE [Concomitant]
  2. FEOSOL [Concomitant]
  3. METANX [Concomitant]
  4. FUROSEMIDE [Concomitant]
  5. BENAZEPRIL HYDROCHLORIDE [Concomitant]
  6. LEVOXYL [Concomitant]
  7. ZINC [Concomitant]
  8. DIOVAN [Concomitant]
  9. LOVAZA [Concomitant]
  10. BETA CAROTENE [Concomitant]
  11. COREG CR [Suspect]
     Indication: CARDIOMYOPATHY
     Dosage: 40MG PER DAY
     Route: 048
  12. LESCOL [Concomitant]
  13. FOLIC ACID [Concomitant]
  14. VITAMIN B COMPLEX CAP [Concomitant]

REACTIONS (2)
  - VASCULITIC RASH [None]
  - PETECHIAE [None]
